FAERS Safety Report 25830133 (Version 1)
Quarter: 2025Q3

REPORT INFORMATION
  Report Type: Report from Study
  Country: CA (occurrence: CA)
  Receive Date: 20250922
  Receipt Date: 20250922
  Transmission Date: 20251021
  Serious: Yes (Hospitalization)
  Sender: ABBVIE
  Company Number: CA-ABBVIE-6468327

PATIENT
  Age: 73 Year
  Sex: Male

DRUGS (2)
  1. RINVOQ [Suspect]
     Active Substance: UPADACITINIB
     Indication: Dermatitis atopic
     Dosage: FORM STRENGTH: 15MG
     Route: 048
     Dates: start: 20220611, end: 202506
  2. RINVOQ [Suspect]
     Active Substance: UPADACITINIB
     Indication: Dermatitis atopic
     Dosage: FORM STRENGTH:15 MG
     Route: 048
     Dates: start: 2025

REACTIONS (2)
  - Knee arthroplasty [Unknown]
  - Eczema [Recovered/Resolved]

NARRATIVE: CASE EVENT DATE: 20250101
